FAERS Safety Report 9697797 (Version 1)
Quarter: 2013Q4

REPORT INFORMATION
  Report Type: Spontaneous
  Country: GB (occurrence: None)
  Receive Date: 20131118
  Receipt Date: 20131118
  Transmission Date: 20140711
  Serious: Yes (Other)
  Sender: FDA-Public Use
  Company Number: FK201304889

PATIENT
  Sex: Female

DRUGS (2)
  1. LETROZOLE [Suspect]
     Indication: PRODUCT USED FOR UNKNOWN INDICATION
  2. HERCEPTIN [Suspect]
     Indication: PRODUCT USED FOR UNKNOWN INDICATION

REACTIONS (6)
  - Sleep apnoea syndrome [None]
  - Abdominal pain upper [None]
  - Heart rate irregular [None]
  - Hypertension [None]
  - Depressed mood [None]
  - Breast tenderness [None]
